FAERS Safety Report 12862154 (Version 2)
Quarter: 2016Q4

REPORT INFORMATION
  Report Type: Spontaneous
  Country: US (occurrence: US)
  Receive Date: 20161019
  Receipt Date: 20161107
  Transmission Date: 20170207
  Serious: No
  Sender: FDA-Public Use
  Company Number: US-GLAXOSMITHKLINE-US2016152497

PATIENT
  Age: 18 Year
  Sex: Female

DRUGS (1)
  1. VENTOLIN HFA [Suspect]
     Active Substance: ALBUTEROL SULFATE
     Indication: ASTHMA
     Dosage: 2 PUFF(S), PRN
     Dates: start: 2010

REACTIONS (7)
  - Skin discolouration [Unknown]
  - Cyanosis [Unknown]
  - Pruritus [Unknown]
  - Seasonal allergy [Unknown]
  - Dyspnoea [Unknown]
  - Tongue discolouration [Unknown]
  - Product quality issue [Unknown]

NARRATIVE: CASE EVENT DATE: 20161017
